FAERS Safety Report 6604270-0 (Version None)
Quarter: 2010Q1

REPORT INFORMATION
  Report Type: 
  Country: None (occurrence: None)
  Receive Date: 20100226
  Receipt Date: 20090821
  Transmission Date: 20100710
  Serious: Yes (Other)
  Sender: FDA-Public Use
  Company Number: A0799517A

PATIENT
  Age: 31 Year
  Sex: Male

DRUGS (4)
  1. LAMOTRIGINE [Suspect]
     Indication: BIPOLAR DISORDER
     Dosage: 200MG PER DAY
     Route: 048
  2. FLUVOXAMINE [Concomitant]
     Dosage: 10MG IN THE MORNING
     Route: 048
     Dates: start: 20090622
  3. CLONAZEPAM [Concomitant]
     Dosage: 1MG THREE TIMES PER DAY
     Route: 048
     Dates: start: 20090311
  4. ADDERALL 30 [Concomitant]
     Dosage: 30MG TWICE PER DAY
     Route: 048
     Dates: start: 20080917

REACTIONS (1)
  - RASH [None]
